FAERS Safety Report 16721941 (Version 1)
Quarter: 2019Q3

REPORT INFORMATION
  Report Type: Report from Study
  Country: US (occurrence: US)
  Receive Date: 20190820
  Receipt Date: 20190820
  Transmission Date: 20191005
  Serious: Yes (Hospitalization, Other)
  Sender: FDA-Public Use
  Company Number: US-ACTELION-A-US2015-111724

PATIENT
  Sex: Female
  Weight: 117.91 kg

DRUGS (3)
  1. OPSUMIT [Suspect]
     Active Substance: MACITENTAN
     Indication: PULMONARY ARTERIAL HYPERTENSION
     Dosage: 10 MG, QD
     Route: 048
  2. ELIQUIS [Concomitant]
     Active Substance: APIXABAN
  3. COUMADIN [Concomitant]
     Active Substance: WARFARIN SODIUM

REACTIONS (8)
  - Dyspnoea [Unknown]
  - Epistaxis [Unknown]
  - Transfusion [Unknown]
  - Cardiac failure congestive [Unknown]
  - Peripheral swelling [Unknown]
  - Pneumonia [Unknown]
  - Malaise [Unknown]
  - Pulmonary arterial hypertension [Unknown]
